FAERS Safety Report 11258299 (Version 2)
Quarter: 2015Q3

REPORT INFORMATION
  Report Type: Report from Study
  Country: MX (occurrence: MX)
  Receive Date: 20150710
  Receipt Date: 20150815
  Transmission Date: 20151125
  Serious: No
  Sender: FDA-Public Use
  Company Number: PHHY2015MX082021

PATIENT
  Sex: Female

DRUGS (5)
  1. KOMBIGLYZE XR [Concomitant]
     Active Substance: METFORMIN HYDROCHLORIDE\SAXAGLIPTIN HYDROCHLORIDE
     Indication: DIABETES MELLITUS
     Dosage: 1 DF, BID ( IN MORNING AND AT NIGHT)
     Route: 048
  2. EXFORGE HCT [Suspect]
     Active Substance: AMLODIPINE BESYLATE\HYDROCHLOROTHIAZIDE\VALSARTAN
     Indication: HYPERTENSION
     Dosage: 5 MG, QD
     Route: 065
     Dates: start: 20150619
  3. LEVOFLOXACIN. [Concomitant]
     Active Substance: LEVOFLOXACIN
     Indication: INFECTION
     Route: 065
  4. HUMALOG [Concomitant]
     Active Substance: INSULIN LISPRO
     Indication: DIABETES MELLITUS
     Dosage: 31 UNITS (16 UNITS IN THE MORNING AND 15 IN THE NIGHT, BID, BID
     Route: 065
  5. GLIMETAL [Concomitant]
     Indication: DIABETES MELLITUS
     Dosage: 1 DF, BID (IN MORNING AND AT NIGHT)
     Route: 048

REACTIONS (1)
  - Hearing impaired [Not Recovered/Not Resolved]
